FAERS Safety Report 20218052 (Version 1)
Quarter: 2021Q4

REPORT INFORMATION
  Report Type: Spontaneous
  Country: US (occurrence: US)
  Receive Date: 20211222
  Receipt Date: 20211222
  Transmission Date: 20220303
  Serious: No
  Sender: FDA-Public Use
  Company Number: US-BRISTOL-MYERS SQUIBB COMPANY-BMS-2021-140237

PATIENT
  Age: 52 Year
  Sex: Female

DRUGS (2)
  1. ORENCIA [Suspect]
     Active Substance: ABATACEPT
     Indication: Rheumatoid arthritis
     Dosage: 1 SYRINGE ONCE WEEKLY
     Route: 065
     Dates: start: 202111
  2. ORENCIA [Suspect]
     Active Substance: ABATACEPT
     Indication: Rheumatoid arthritis
     Dosage: 1 SYRINGE ONCE WEEKLY
     Route: 065
     Dates: start: 202111

REACTIONS (4)
  - Headache [Unknown]
  - Migraine [Unknown]
  - Nausea [Unknown]
  - Vomiting [Unknown]
